FAERS Safety Report 12110095 (Version 1)
Quarter: 2016Q1

REPORT INFORMATION
  Report Type: Report from Study
  Country: ES (occurrence: ES)
  Receive Date: 20160224
  Receipt Date: 20160224
  Transmission Date: 20160526
  Serious: Yes (Death, Hospitalization)
  Sender: FDA-Public Use
  Company Number: ES-SA-2016SA028664

PATIENT
  Age: 55 Year
  Sex: Male

DRUGS (5)
  1. TRAMADOL. [Interacting]
     Active Substance: TRAMADOL
     Indication: SUICIDE ATTEMPT
     Dosage: 10 CPS
     Route: 048
     Dates: start: 20141101, end: 20141101
  2. LYRICA [Interacting]
     Active Substance: PREGABALIN
     Indication: SUICIDE ATTEMPT
     Dosage: 10 CP
     Route: 048
     Dates: start: 20141101, end: 20141101
  3. STILNOX [Suspect]
     Active Substance: ZOLPIDEM TARTRATE
     Indication: SUICIDE ATTEMPT
     Dosage: 10 CPS
     Route: 048
     Dates: start: 20141101, end: 20141101
  4. INACID [Interacting]
     Active Substance: INDOMETHACIN
     Indication: SUICIDE ATTEMPT
     Dosage: 10 CPS
     Route: 048
     Dates: start: 20141101, end: 20141101
  5. ORFIDAL [Interacting]
     Active Substance: LORAZEPAM
     Indication: SUICIDE ATTEMPT
     Dosage: 20 CPS
     Route: 048
     Dates: start: 20141101, end: 20141101

REACTIONS (3)
  - Pancytopenia [Fatal]
  - Acute kidney injury [Fatal]
  - Rhabdomyolysis [Fatal]

NARRATIVE: CASE EVENT DATE: 20141101
